FAERS Safety Report 5610507-7 (Version None)
Quarter: 2008Q1

REPORT INFORMATION
  Report Type: 
  Country: None (occurrence: None)
  Receive Date: 20080201
  Receipt Date: 20080130
  Transmission Date: 20080703
  Serious: Yes (Other)
  Sender: FDA-Public Use
  Company Number: CH-BAYER-200810527GPV

PATIENT
  Age: 57 Year
  Sex: Male
  Weight: 80 kg

DRUGS (2)
  1. BETASERON [Suspect]
     Indication: MULTIPLE SCLEROSIS
     Route: 042
     Dates: start: 20020101
  2. SIRDALUD /TIZANIDINUM [Concomitant]
     Indication: UNEVALUABLE EVENT

REACTIONS (1)
  - CHRONIC LYMPHOCYTIC LEUKAEMIA [None]
